FAERS Safety Report 19300420 (Version 1)
Quarter: 2021Q2

REPORT INFORMATION
  Report Type: Spontaneous
  Country: EG (occurrence: EG)
  Receive Date: 20210525
  Receipt Date: 20210525
  Transmission Date: 20210717
  Serious: Yes (Other)
  Sender: FDA-Public Use
  Company Number: EG-HIKMA PHARMACEUTICALS USA INC.-EG-H14001-21-02353

PATIENT
  Age: 60 Year
  Sex: Male

DRUGS (3)
  1. ETOPUL [Suspect]
     Active Substance: ETOPOSIDE
     Indication: LUNG NEOPLASM MALIGNANT
     Dosage: ADMINISTERED ON DAYS 1, 2 AND 3 OF EACH 21 DAYS CYCLE
     Route: 041
  2. CISPLATIN. [Suspect]
     Active Substance: CISPLATIN
     Indication: LUNG NEOPLASM MALIGNANT
     Dosage: ON DAY 1 OF EACH 21 DAYS CYCLE
     Route: 041
  3. DELATAVIT B12 [Concomitant]
     Indication: PRODUCT USED FOR UNKNOWN INDICATION
     Dosage: UNKNOWN
     Route: 065

REACTIONS (9)
  - Swelling face [Unknown]
  - Leukocytosis [Unknown]
  - Neutrophilia [Unknown]
  - Peripheral swelling [Unknown]
  - Constipation [Unknown]
  - Productive cough [Unknown]
  - Malaise [Unknown]
  - Blood glucose increased [Unknown]
  - Thrombocytopenia [Unknown]
